FAERS Safety Report 10418985 (Version 1)
Quarter: 2014Q2

REPORT INFORMATION
  Report Type: Spontaneous
  Country: US (occurrence: None)
  Receive Date: 20140625
  Receipt Date: 20140625
  Transmission Date: 20141212
  Serious: No
  Sender: FDA-Public Use
  Company Number: A-US2014-95982

PATIENT
  Age: 71 Year
  Sex: Female

DRUGS (14)
  1. OPSUMIT (MACITENTAN) [Suspect]
     Indication: PULMONARY HYPERTENSION
     Route: 048
     Dates: start: 20140301, end: 201403
  2. QUINACRINE (MEPACRINE HYDROCHLORIDE) [Concomitant]
  3. PILOCARPINE (PILOCARPINE) [Concomitant]
  4. DIOVAN (VALSARTAN) [Concomitant]
  5. CARTIA (ACETYLSALICYLIC ACID) [Concomitant]
  6. SPIRONOLACTONE (SPIRONOLACTONE) [Concomitant]
  7. FUROSEMIDE (FUROSEMIDE) [Concomitant]
  8. OMEPRAZOLE (OMEPRAZOLE) [Concomitant]
  9. ASPIRIN (ACETYLSALICYLIC ACID) [Concomitant]
  10. TRIAMCINOLONE (TRIAMCINOLONE DIACETATE) [Concomitant]
  11. ACIDOPHILUS (LACTOBACILLUS ACIDOPHILUS) [Concomitant]
  12. FLAXSEED OIL (LINUM USITATISSIMUM SEED OIL) [Concomitant]
  13. FISH OIL (COD-LIVER OIL) [Concomitant]
  14. TURMERIC (CURCUMA LONGA RHIZOME) [Concomitant]

REACTIONS (8)
  - Insomnia [None]
  - Nausea [None]
  - Cough [None]
  - Muscle spasms [None]
  - Decreased appetite [None]
  - Headache [None]
  - Dyspnoea [None]
  - Abdominal pain upper [None]
